FAERS Safety Report 13658893 (Version 1)
Quarter: 2017Q2

REPORT INFORMATION
  Report Type: Spontaneous
  Country: US (occurrence: US)
  Receive Date: 20170615
  Receipt Date: 20170615
  Transmission Date: 20170830
  Serious: Yes (Hospitalization)
  Sender: FDA-Public Use
  Company Number: None

PATIENT
  Age: 77 Year
  Sex: Male

DRUGS (18)
  1. ASPIRIN. [Concomitant]
     Active Substance: ASPIRIN
  2. FUROSEMIDE. [Concomitant]
     Active Substance: FUROSEMIDE
  3. MULTI-VITE [Concomitant]
  4. TAMSULOSIN [Concomitant]
     Active Substance: TAMSULOSIN
  5. VITAMIN C [Concomitant]
     Active Substance: ASCORBIC ACID
  6. XGEVA [Suspect]
     Active Substance: DENOSUMAB
  7. ISOSORN [Concomitant]
  8. LANTUS [Concomitant]
     Active Substance: INSULIN GLARGINE
  9. CINNAMON. [Concomitant]
     Active Substance: CINNAMON
  10. POTASSIUM [Concomitant]
     Active Substance: POTASSIUM
  11. VITAMIN D3 [Concomitant]
     Active Substance: CHOLECALCIFEROL
  12. CITRACAL [Concomitant]
     Active Substance: CALCIUM CITRATE
  13. OMEPRAZOLE. [Concomitant]
     Active Substance: OMEPRAZOLE
  14. IRON [Concomitant]
     Active Substance: IRON
  15. AMIODARONE [Concomitant]
     Active Substance: AMIODARONE
  16. SPIRIVA [Concomitant]
     Active Substance: TIOTROPIUM BROMIDE MONOHYDRATE
  17. XTANDI [Concomitant]
     Active Substance: ENZALUTAMIDE
  18. LUPRON DEPOT [Suspect]
     Active Substance: LEUPROLIDE ACETATE
     Indication: PROSTATE CANCER
     Dosage: 22.5MG Q 3 MONTHS IM
     Route: 030
     Dates: start: 20140813

REACTIONS (1)
  - Liver disorder [None]

NARRATIVE: CASE EVENT DATE: 20170613
